FAERS Safety Report 17822672 (Version 3)
Quarter: 2020Q3

REPORT INFORMATION
  Report Type: Spontaneous
  Country: US (occurrence: US)
  Receive Date: 20200526
  Receipt Date: 20200722
  Transmission Date: 20201102
  Serious: No
  Sender: FDA-Public Use
  Company Number: US-ASTRAZENECA-2020SE65163

PATIENT
  Age: 880 Month
  Sex: Female
  Weight: 40.4 kg

DRUGS (8)
  1. SERTALIN [Concomitant]
     Indication: ANXIETY
     Route: 048
     Dates: start: 2014
  2. CVS SENOKOT [Concomitant]
     Indication: CONSTIPATION
     Dosage: TWO TIMES A DAY
     Route: 048
     Dates: start: 20200511
  3. COLACE [Concomitant]
     Active Substance: DOCUSATE SODIUM
     Indication: CONSTIPATION
     Dosage: UNKNOWN
     Route: 048
  4. CENTRUM SILVER [Concomitant]
     Active Substance: MINERALS\VITAMINS
     Indication: NUTRITIONAL SUPPLEMENTATION
     Dosage: UNKNOWN
     Route: 048
  5. MIRTAZAPINE. [Concomitant]
     Active Substance: MIRTAZAPINE
     Indication: ANTIDEPRESSANT THERAPY
     Route: 048
     Dates: start: 202001
  6. BEVESPI AEROSPHERE [Suspect]
     Active Substance: FORMOTEROL FUMARATE\GLYCOPYRROLATE
     Indication: CHRONIC OBSTRUCTIVE PULMONARY DISEASE
     Dosage: 9/4.8 MCG, 2 PUFFS TWO TIMES A DAY
     Route: 055
     Dates: start: 201901
  7. NICORETTE [Concomitant]
     Active Substance: NICOTINE
     Dosage: UNKNOWN
     Route: 065
  8. OLANZAPINE. [Concomitant]
     Active Substance: OLANZAPINE
     Indication: ANTIDEPRESSANT THERAPY
     Route: 048
     Dates: start: 202001

REACTIONS (5)
  - Wrong technique in device usage process [Unknown]
  - Drug delivery system issue [Unknown]
  - Constipation [Recovered/Resolved]
  - Drug dose omission by device [Unknown]
  - Intentional device misuse [Unknown]

NARRATIVE: CASE EVENT DATE: 202001
